FAERS Safety Report 18619083 (Version 1)
Quarter: 2020Q4

REPORT INFORMATION
  Report Type: Spontaneous
  Country: GB (occurrence: GB)
  Receive Date: 20201215
  Receipt Date: 20201215
  Transmission Date: 20210114
  Serious: Yes (Death, Hospitalization)
  Sender: FDA-Public Use
  Company Number: NVSC2020GB332200

PATIENT
  Age: 83 Year
  Sex: Female
  Weight: 39.7 kg

DRUGS (1)
  1. PARACETAMOL [Suspect]
     Active Substance: ACETAMINOPHEN
     Indication: PRODUCT USED FOR UNKNOWN INDICATION
     Dosage: 4 G, QD (GIVEN ON 11 DAYS OUT OF THE 28 DAYS PARACETAMOL WAS PRESCRIBED)
     Route: 065
     Dates: start: 20200108

REACTIONS (5)
  - Nausea [Unknown]
  - Product prescribing error [Unknown]
  - Multiple organ dysfunction syndrome [Fatal]
  - Pneumonia [Unknown]
  - Drug-induced liver injury [Unknown]

NARRATIVE: CASE EVENT DATE: 20200208
